FAERS Safety Report 7949340-X (Version None)
Quarter: 2011Q4

REPORT INFORMATION
  Report Type: 
  Country: None (occurrence: None)
  Receive Date: 20111130
  Receipt Date: 20111128
  Transmission Date: 20120403
  Serious: Yes (Death, Other)
  Sender: FDA-Public Use
  Company Number: BR-ABBOTT-11P-020-0878844-00

PATIENT
  Age: 76 Year
  Sex: Female
  Weight: 58 kg

DRUGS (6)
  1. UNSPECIFIED MEDICATIONS [Concomitant]
     Indication: HYPERTENSION
  2. CORTISONE ACETATE [Concomitant]
     Indication: PRODUCT USED FOR UNKNOWN INDICATION
  3. UNSPECIFIED MEDICATIONS [Concomitant]
     Indication: DEPRESSION
  4. UNSPECIFIED MEDICATIONS [Concomitant]
     Indication: MUSCULOSKELETAL PAIN
  5. HUMIRA [Suspect]
     Indication: RHEUMATOID ARTHRITIS
     Route: 058
     Dates: end: 20060101
  6. UNSPECIFIED MEDICATIONS [Concomitant]
     Indication: ANTIBIOTIC THERAPY

REACTIONS (13)
  - DYSPHAGIA [None]
  - INVESTIGATION ABNORMAL [None]
  - MULTI-ORGAN FAILURE [None]
  - FALL [None]
  - YELLOW SKIN [None]
  - CEREBROVASCULAR ACCIDENT [None]
  - GAIT DISTURBANCE [None]
  - BEDRIDDEN [None]
  - HIP FRACTURE [None]
  - INFECTION [None]
  - CHOLELITHIASIS [None]
  - DRUG INEFFECTIVE [None]
  - ASTHENIA [None]
